FAERS Safety Report 9647556 (Version 1)
Quarter: 2013Q4

REPORT INFORMATION
  Report Type: Spontaneous
  Country: US (occurrence: US)
  Receive Date: 20131028
  Receipt Date: 20131028
  Transmission Date: 20140711
  Serious: No
  Sender: FDA-Public Use
  Company Number: US-BIOGENIDEC-2013BI100022

PATIENT
  Age: 67 Year
  Sex: Female

DRUGS (6)
  1. AVONEX [Suspect]
     Indication: RELAPSING-REMITTING MULTIPLE SCLEROSIS
     Route: 030
     Dates: start: 20130915
  2. CETALOPRAM [Concomitant]
     Indication: DEPRESSION
     Route: 048
     Dates: start: 20130201
  3. LISINOPRIL [Concomitant]
     Indication: HYPERTENSION
     Route: 048
     Dates: start: 20130201
  4. NORCO [Concomitant]
     Indication: BACK PAIN
     Route: 048
     Dates: start: 20130301
  5. BACLOFEN [Concomitant]
     Indication: MUSCLE SPASMS
     Route: 048
     Dates: start: 20130201
  6. TYLENOL [Concomitant]
     Route: 048
     Dates: start: 20130201

REACTIONS (4)
  - Mobility decreased [Recovered/Resolved]
  - Affective disorder [Unknown]
  - Pain [Recovered/Resolved]
  - Fatigue [Not Recovered/Not Resolved]
